FAERS Safety Report 17462568 (Version 2)
Quarter: 2020Q2

REPORT INFORMATION
  Report Type: Spontaneous
  Country: DE (occurrence: DE)
  Receive Date: 20200226
  Receipt Date: 20200407
  Transmission Date: 20200713
  Serious: Yes (Other)
  Sender: FDA-Public Use
  Company Number: DE-ALEXION PHARMACEUTICALS INC.-A202002213

PATIENT
  Sex: Female
  Weight: 59 kg

DRUGS (3)
  1. ULTOMIRIS [Suspect]
     Active Substance: RAVULIZUMAB-CWVZ
     Indication: PAROXYSMAL NOCTURNAL HAEMOGLOBINURIA
     Dosage: 3000 MG ,
     Route: 065
     Dates: start: 20190904
  2. ULTOMIRIS [Suspect]
     Active Substance: RAVULIZUMAB-CWVZ
     Dosage: 3000 MG ,
     Route: 065
     Dates: start: 20190918
  3. ULTOMIRIS [Suspect]
     Active Substance: RAVULIZUMAB-CWVZ
     Dosage: 3300 MG,
     Route: 065
     Dates: start: 20200304

REACTIONS (2)
  - Haemoglobin decreased [Unknown]
  - Haemolysis [Unknown]

NARRATIVE: CASE EVENT DATE: 20200127
